FAERS Safety Report 5728048-5 (Version None)
Quarter: 2008Q2

REPORT INFORMATION
  Report Type: 
  Country: None (occurrence: None)
  Receive Date: 20080430
  Receipt Date: 20080227
  Transmission Date: 20081010
  Serious: No
  Sender: FDA-Public Use
  Company Number: 2008PV034404

PATIENT
  Age: 64 Year
  Sex: Female

DRUGS (4)
  1. SYMLIN [Suspect]
     Indication: TYPE 1 DIABETES MELLITUS
     Dosage: 45 MCG;BID;SC ; 30 MCG;BID;SC ; 15 MCG;BID;SC
     Route: 058
     Dates: start: 20080201, end: 20080201
  2. SYMLIN [Suspect]
     Indication: TYPE 1 DIABETES MELLITUS
     Dosage: 45 MCG;BID;SC ; 30 MCG;BID;SC ; 15 MCG;BID;SC
     Route: 058
     Dates: start: 20080215, end: 20080201
  3. SYMLIN [Suspect]
     Indication: TYPE 1 DIABETES MELLITUS
     Dosage: 45 MCG;BID;SC ; 30 MCG;BID;SC ; 15 MCG;BID;SC
     Route: 058
     Dates: start: 20080201, end: 20080226
  4. HUMALOG [Concomitant]

REACTIONS (1)
  - BLOOD GLUCOSE INCREASED [None]
